FAERS Safety Report 5038022-2 (Version None)
Quarter: 2006Q2

REPORT INFORMATION
  Report Type: 
  Country: None (occurrence: None)
  Receive Date: 20060601
  Receipt Date: 20060205
  Transmission Date: 20061013
  Serious: No
  Sender: FDA-Public Use
  Company Number: 2006PV008130

PATIENT
  Age: 47 Year
  Sex: Female
  Weight: 150.5942 kg

DRUGS (6)
  1. BYETTA [Suspect]
     Indication: DIABETES MELLITUS NON-INSULIN-DEPENDENT
     Dosage: 5 MCG;BID;SC
     Route: 058
     Dates: start: 20060203
  2. AVANDAMET [Concomitant]
  3. HUMALOG [Concomitant]
  4. HUMULIN [Concomitant]
  5. METFORMIN [Concomitant]
  6. AVANDIA [Concomitant]

REACTIONS (2)
  - ANOREXIA [None]
  - BLOOD GLUCOSE INCREASED [None]
